FAERS Safety Report 16772659 (Version 1)
Quarter: 2019Q3

REPORT INFORMATION
  Report Type: Spontaneous
  Country: JP (occurrence: JP)
  Receive Date: 20190904
  Receipt Date: 20190904
  Transmission Date: 20191005
  Serious: Yes (Other)
  Sender: FDA-Public Use
  Company Number: JP-SAKK-2019SA243912AA

PATIENT

DRUGS (1)
  1. RASURITEK 1.5MG [Suspect]
     Active Substance: RASBURICASE
     Indication: PROPHYLAXIS
     Route: 041

REACTIONS (2)
  - Off label use [Unknown]
  - Tumour lysis syndrome [Unknown]
